FAERS Safety Report 7487653-9 (Version None)
Quarter: 2011Q2

REPORT INFORMATION
  Report Type: 
  Country: None (occurrence: None)
  Receive Date: 20110518
  Receipt Date: 20091122
  Transmission Date: 20111010
  Serious: Yes (Death, Hospitalization, Other)
  Sender: FDA-Public Use
  Company Number: US-BAYER-200940671NA

PATIENT
  Age: 73 Year
  Sex: Female
  Weight: 75 kg

DRUGS (21)
  1. LASIX [Concomitant]
     Dosage: 20MG
     Route: 042
     Dates: start: 20070319
  2. PROTAMINE SULFATE [Concomitant]
     Dosage: 50MG
     Route: 042
     Dates: start: 20070319
  3. TRASYLOL [Suspect]
     Indication: TRICUSPID VALVE REPAIR
  4. MINIPRESS [Concomitant]
     Dosage: 5 MG, BID
     Route: 048
  5. HUMALOG [Concomitant]
     Dosage: 7 UNITS IN THE AM 7 UNITS PM
     Route: 058
  6. TRASYLOL [Suspect]
     Indication: CORONARY ARTERY BYPASS
  7. LOTREL [Concomitant]
     Dosage: 10-40MG CAPSULE DAILY
     Route: 048
  8. AMIODARONE HCL [Concomitant]
     Dosage: 1MG PER MINUTE- DO NOT TITRATE
     Dates: start: 20070319
  9. PLAVIX [Concomitant]
     Dosage: 75 MG, QD
     Route: 048
  10. HEPARIN [Concomitant]
     Dosage: 3000UNITS IN 500CC LR
     Route: 042
  11. HEPARIN [Concomitant]
     Dosage: 1000 UNITS IN 250CC SALINE
     Route: 042
  12. ALBUMIN (HUMAN) [Concomitant]
     Dosage: 12.5
     Route: 042
     Dates: start: 20070319
  13. AMIODARONE HCL [Concomitant]
     Dosage: 150MG
     Route: 042
     Dates: start: 20070319
  14. RED BLOOD CELLS [Concomitant]
     Dosage: UNK
     Dates: start: 20070319
  15. ALBUMIN (HUMAN) [Concomitant]
     Dosage: 5% - 250ML X 2
     Dates: start: 20070319
  16. MANNITOL [Concomitant]
     Dosage: 12.5 GRAMS
     Route: 042
     Dates: start: 20070319
  17. ACETYLSALICYLIC ACID SRT [Concomitant]
     Dosage: 81 MG, QD
     Route: 048
  18. HUMULIN N [Concomitant]
     Dosage: 15 UNITS IN THE AM 20 UNITS PM
     Route: 058
  19. PROTAMINE SULFATE [Concomitant]
     Dosage: 35MG
     Route: 042
     Dates: start: 20070319
  20. VANCOMYCIN [Concomitant]
     Dosage: 500MG
     Route: 042
     Dates: start: 20070519
  21. TRASYLOL [Suspect]
     Indication: MITRAL VALVE REPLACEMENT
     Dosage: TEST DOSE (200ML PUMP PRIME) LOADING DOSE (200CC THEN 50CC/HR)
     Route: 042
     Dates: start: 20070319, end: 20070319

REACTIONS (13)
  - RENAL FAILURE [None]
  - FEAR [None]
  - EMOTIONAL DISTRESS [None]
  - ANXIETY [None]
  - INJURY [None]
  - MULTI-ORGAN FAILURE [None]
  - RENAL INJURY [None]
  - DEATH [None]
  - RENAL IMPAIRMENT [None]
  - STRESS [None]
  - ANHEDONIA [None]
  - UNEVALUABLE EVENT [None]
  - PAIN [None]
